FAERS Safety Report 17535334 (Version 5)
Quarter: 2020Q2

REPORT INFORMATION
  Report Type: Report from Study
  Country: US (occurrence: US)
  Receive Date: 20200312
  Receipt Date: 20200521
  Transmission Date: 20200713
  Serious: Yes (Hospitalization, Other)
  Sender: FDA-Public Use
  Company Number: US-ACTELION-A-NJ2017-160345

PATIENT
  Age: 51 Year
  Sex: Female
  Weight: 64.85 kg

DRUGS (12)
  1. VELETRI [Suspect]
     Active Substance: EPOPROSTENOL
     Dosage: 35.3 NG/KG, PER MIN
     Route: 042
  2. VELETRI [Suspect]
     Active Substance: EPOPROSTENOL
     Dosage: 22 NG/KG, PER MIN
     Route: 042
  3. ADCIRCA [Concomitant]
     Active Substance: TADALAFIL
  4. VELETRI [Suspect]
     Active Substance: EPOPROSTENOL
     Dosage: 40.4 NG/KG, PER MIN
     Route: 042
  5. VELETRI [Suspect]
     Active Substance: EPOPROSTENOL
     Dosage: 43.6 NG/KG, PER MIN
     Route: 042
  6. LIDOCAINE HCL [Concomitant]
     Active Substance: LIDOCAINE HYDROCHLORIDE
     Indication: PRODUCT USED FOR UNKNOWN INDICATION
     Route: 061
  7. VELETRI [Suspect]
     Active Substance: EPOPROSTENOL
     Dosage: 38.3 NG/KG, PER MIN
     Route: 042
  8. VELETRI [Suspect]
     Active Substance: EPOPROSTENOL
     Indication: PULMONARY HYPERTENSION
     Dosage: 45.2 NG/KG, PER MIN
     Route: 042
  9. OPSUMIT [Suspect]
     Active Substance: MACITENTAN
     Indication: PULMONARY HYPERTENSION
     Dosage: UNK
     Route: 048
     Dates: start: 20160516
  10. VELETRI [Suspect]
     Active Substance: EPOPROSTENOL
     Dosage: 32.8 NG/KG, PER MIN
     Route: 042
  11. VELETRI [Suspect]
     Active Substance: EPOPROSTENOL
     Dosage: 44.7 NG/KG, PER MIN
     Route: 042
  12. IRON [Concomitant]
     Active Substance: IRON
     Indication: ANAEMIA

REACTIONS (43)
  - Device breakage [Unknown]
  - Sjogren^s syndrome [Not Recovered/Not Resolved]
  - Fatigue [Unknown]
  - Catheter site pain [Unknown]
  - Dehydration [Unknown]
  - Asthma [Unknown]
  - Catheter site pruritus [Unknown]
  - Decreased appetite [Unknown]
  - Anaemia [Unknown]
  - Dizziness [Unknown]
  - Pain in jaw [Unknown]
  - Blood potassium decreased [Unknown]
  - Dyspnoea at rest [Unknown]
  - Ill-defined disorder [Unknown]
  - Multiple allergies [Unknown]
  - Diarrhoea [Unknown]
  - Headache [Unknown]
  - Catheter site erythema [Unknown]
  - Catheter site related reaction [Unknown]
  - Palpitations [Unknown]
  - Dyspnoea exertional [Unknown]
  - Nausea [Unknown]
  - Flushing [Unknown]
  - Constipation [Unknown]
  - Catheter management [Unknown]
  - Transplant evaluation [Unknown]
  - Laryngitis [Unknown]
  - Hypotension [Unknown]
  - Pruritus [Unknown]
  - Nasopharyngitis [Unknown]
  - Gastric disorder [Unknown]
  - Pain [Unknown]
  - Rash [Recovering/Resolving]
  - Abdominal discomfort [Recovered/Resolved]
  - Catheter site discharge [Unknown]
  - Stress [Unknown]
  - Systemic lupus erythematosus [Not Recovered/Not Resolved]
  - Flatulence [Unknown]
  - Abdominal distension [Unknown]
  - Head discomfort [Unknown]
  - Chest discomfort [Unknown]
  - Malaise [Unknown]
  - Blood magnesium decreased [Unknown]

NARRATIVE: CASE EVENT DATE: 20200229
